FAERS Safety Report 9259357 (Version 1)
Quarter: 2013Q2

REPORT INFORMATION
  Report Type: Report from Study
  Country: DE (occurrence: DE)
  Receive Date: 20130427
  Receipt Date: 20130427
  Transmission Date: 20140414
  Serious: Yes (Hospitalization)
  Sender: FDA-Public Use
  Company Number: DE-TEVA-400476ISR

PATIENT
  Age: 29 Year
  Sex: Female
  Weight: 90.5 kg

DRUGS (3)
  1. PACLITAXEL [Suspect]
     Indication: OVARIAN CANCER
     Dosage: LAST DOSE PRIOR TO SAE ON 10-APR-2013 (350 MG)
     Route: 042
     Dates: start: 20130130
  2. CARBOPLATIN [Suspect]
     Indication: OVARIAN CANCER
     Dosage: LAST DOSE PRIOR TO SAE ON 10-APR-2013 (1110 MG)
     Route: 042
     Dates: start: 20130130
  3. BEVACIZUMAB [Suspect]
     Indication: OVARIAN CANCER
     Dosage: LAST DOSE PRIOR TO SAE ON 10-APR-2013 (1350 MG)
     Route: 042
     Dates: start: 20130130

REACTIONS (1)
  - Cystitis [Not Recovered/Not Resolved]
